FAERS Safety Report 20609174 (Version 5)
Quarter: 2022Q2

REPORT INFORMATION
  Report Type: Spontaneous
  Country: PE (occurrence: PE)
  Receive Date: 20220317
  Receipt Date: 20220512
  Transmission Date: 20220720
  Serious: Yes (Other)
  Sender: FDA-Public Use
  Company Number: PE-PFIZER INC-202200372962

PATIENT
  Age: 55 Year
  Sex: Female

DRUGS (1)
  1. XELJANZ [Suspect]
     Active Substance: TOFACITINIB CITRATE
     Indication: Rheumatoid arthritis
     Dosage: 1 DF, DAILY
     Route: 048

REACTIONS (10)
  - Eye haemorrhage [Recovered/Resolved]
  - Rheumatoid arthritis [Recovered/Resolved]
  - Gastritis erosive [Not Recovered/Not Resolved]
  - Oxygen saturation decreased [Unknown]
  - Depressed mood [Unknown]
  - Transaminases increased [Recovered/Resolved]
  - Hiatus hernia [Unknown]
  - Osteopenia [Not Recovered/Not Resolved]
  - Vitamin B12 deficiency [Unknown]
  - Cortisol decreased [Unknown]

NARRATIVE: CASE EVENT DATE: 20190101
